FAERS Safety Report 8814435 (Version 1)
Quarter: 2012Q4

REPORT INFORMATION
  Report Type: 
  Country: US (occurrence: US)
  Receive Date: 20120928
  Receipt Date: 20120928
  Transmission Date: 20130627
  Serious: Yes (Death, Hospitalization)
  Sender: FDA-Public Use
  Company Number: PHEH2012US017761

PATIENT
  Age: 61 Year
  Sex: Male
  Weight: 176 kg

DRUGS (1)
  1. GLEEVEC [Suspect]
     Indication: CHRONIC MYELOID LEUKAEMIA
     Dosage: 400 mg, daily
     Route: 048
     Dates: start: 20120416

REACTIONS (4)
  - Death [Fatal]
  - Neutropenia [Unknown]
  - Pyrexia [Unknown]
  - White blood cell disorder [Unknown]
